FAERS Safety Report 8511068-5 (Version None)
Quarter: 2012Q3

REPORT INFORMATION
  Report Type: 
  Country: None (occurrence: None)
  Receive Date: 20120716
  Receipt Date: 20120706
  Transmission Date: 20120928
  Serious: Yes (Hospitalization, Other)
  Sender: FDA-Public Use
  Company Number: US-JNJFOC-20120403692

PATIENT
  Sex: Female

DRUGS (15)
  1. LEVOTHYROXINE SODIUM [Concomitant]
     Indication: THYROID DISORDER
  2. HYDROCODONE [Concomitant]
     Indication: ANALGESIC THERAPY
     Route: 065
  3. LEVOXYL [Concomitant]
     Indication: THYROID DISORDER
     Route: 065
  4. LEVAQUIN [Suspect]
     Indication: ASTHMA
     Route: 048
     Dates: start: 20010101, end: 20090101
  5. SINGULAIR [Concomitant]
     Indication: HYPERSENSITIVITY
     Route: 065
  6. METHYLPREDNISOLONE [Suspect]
     Indication: ARTHRITIS
     Route: 065
  7. SPIRIVA [Concomitant]
     Indication: ASTHMA
     Route: 065
  8. CIPROFLOXACIN [Suspect]
     Indication: ANTIBIOTIC THERAPY
     Route: 048
  9. ALBUTEROL [Concomitant]
     Indication: ASTHMA
     Route: 065
  10. CLARITHROMYCIN [Concomitant]
     Indication: ANTIBIOTIC THERAPY
     Route: 065
  11. LEVAQUIN [Suspect]
     Indication: BRONCHITIS CHRONIC
     Route: 048
     Dates: start: 20010101, end: 20090101
  12. PREDNISONE [Suspect]
     Indication: ARTHRITIS
     Route: 048
  13. DEXAMETHASONE [Suspect]
     Indication: HYPERSENSITIVITY
     Route: 065
  14. METHYLPREDNISOLONE [Suspect]
     Indication: PRODUCT USED FOR UNKNOWN INDICATION
     Route: 042
  15. ACETYLCYSTEINE [Concomitant]
     Route: 065

REACTIONS (3)
  - ROTATOR CUFF SYNDROME [None]
  - TENDONITIS [None]
  - TENOSYNOVITIS [None]
